FAERS Safety Report 8988767 (Version 2)
Quarter: 2013Q2

REPORT INFORMATION
  Report Type: Report from Study
  Country: IT (occurrence: IT)
  Receive Date: 20121228
  Receipt Date: 20130502
  Transmission Date: 20140414
  Serious: Yes (Hospitalization)
  Sender: FDA-Public Use
  Company Number: IT-BRISTOL-MYERS SQUIBB COMPANY-17226796

PATIENT
  Age: 34 Year
  Sex: Male
  Weight: 76 kg

DRUGS (6)
  1. CARBOPLATIN [Suspect]
     Indication: NON-SMALL CELL LUNG CANCER
     Dosage: PRIOR TO EVENT: 28NOV12
     Route: 042
     Dates: start: 20121107
  2. PACLITAXEL [Suspect]
     Indication: NON-SMALL CELL LUNG CANCER
     Dosage: PRIOR TO EVENT: 28NOV12
     Route: 042
     Dates: start: 20121107
  3. UGUROL [Concomitant]
     Indication: HAEMOPTYSIS
     Route: 048
     Dates: start: 20121116, end: 20121211
  4. LEVOXACIN [Concomitant]
     Route: 048
     Dates: start: 20121129, end: 20121202
  5. PEPTAZOL [Concomitant]
     Route: 048
     Dates: start: 20121129, end: 20121211
  6. DELTACORTENE [Concomitant]
     Indication: COUGH
     Route: 048
     Dates: start: 20121129, end: 20121211

REACTIONS (4)
  - Pyrexia [Recovered/Resolved]
  - Rash macular [Recovered/Resolved]
  - Vomiting [Recovered/Resolved]
  - Nausea [Recovered/Resolved]
